FAERS Safety Report 7644488-1 (Version None)
Quarter: 2011Q3

REPORT INFORMATION
  Report Type: 
  Country: None (occurrence: None)
  Receive Date: 20110729
  Receipt Date: 20110723
  Transmission Date: 20111222
  Serious: Yes (Disabling)
  Sender: FDA-Public Use
  Company Number: US-ROCHE-792328

PATIENT
  Sex: Male

DRUGS (2)
  1. PEGASYS [Suspect]
     Route: 058
     Dates: start: 20110707
  2. RIBASPHERE [Suspect]
     Route: 048
     Dates: start: 20110707

REACTIONS (3)
  - HYPOTENSION [None]
  - NAUSEA [None]
  - LETHARGY [None]
